FAERS Safety Report 5441615-1 (Version None)
Quarter: 2007Q3

REPORT INFORMATION
  Report Type: 
  Country: None (occurrence: None)
  Receive Date: 20070829
  Receipt Date: 20070816
  Transmission Date: 20080115
  Serious: Yes (Hospitalization)
  Sender: FDA-Public Use
  Company Number: 2005P1000424

PATIENT
  Age: 76 Year
  Sex: Male
  Weight: 78 kg

DRUGS (14)
  1. RETEPLASE (RETEPLASE) [Suspect]
     Indication: ACUTE MYOCARDIAL INFARCTION
     Dosage: 5 IU; X1; I V
     Route: 042
     Dates: start: 20041208, end: 20041208
  2. ABCIXIMAB (ABCIXIMAB) [Suspect]
     Indication: ACUTE MYOCARDIAL INFARCTION
     Dosage: 9.8 MG; X1; IV, 192 MG; X1; IV
     Route: 042
     Dates: start: 20041208, end: 20041208
  3. ABCIXIMAB (ABCIXIMAB) [Suspect]
     Indication: ACUTE MYOCARDIAL INFARCTION
     Dosage: 9.8 MG; X1; IV, 192 MG; X1; IV
     Route: 042
     Dates: start: 20041208, end: 20041208
  4. PLACEBO (PLACEBO) [Suspect]
     Indication: ACUTE MYOCARDIAL INFARCTION
     Dosage: 0.25 MG/KG; X1; IV
     Route: 042
     Dates: start: 20041208, end: 20041208
  5. RANITIDINE [Concomitant]
  6. IBUPROFEN [Concomitant]
  7. ASPIRIN [Concomitant]
  8. EGILOK [Concomitant]
  9. PIRACETAM [Concomitant]
  10. AMINOPHYLLINE [Concomitant]
  11. FUROSEMIDE [Concomitant]
  12. SPIRONOLACTONE [Concomitant]
  13. TIAPRIDE [Concomitant]
  14. AMLODIPINE [Concomitant]

REACTIONS (12)
  - ABNORMAL BEHAVIOUR [None]
  - AGGRESSION [None]
  - ATRIAL FIBRILLATION [None]
  - CONFUSIONAL STATE [None]
  - CORONARY ARTERY BYPASS [None]
  - CORONARY ARTERY DISEASE [None]
  - DELIRIUM [None]
  - DISORIENTATION [None]
  - POST PROCEDURAL COMPLICATION [None]
  - POST PROCEDURAL HAEMORRHAGE [None]
  - PRODUCTIVE COUGH [None]
  - RENAL IMPAIRMENT [None]
